FAERS Safety Report 10102984 (Version 1)
Quarter: 2014Q2

REPORT INFORMATION
  Report Type: Spontaneous
  Country: US (occurrence: US)
  Receive Date: 20140424
  Receipt Date: 20140424
  Transmission Date: 20141212
  Serious: No
  Sender: FDA-Public Use
  Company Number: US-BRISTOL-MYERS SQUIBB COMPANY-20035002

PATIENT
  Age: 76 Year
  Sex: Male
  Weight: 104.31 kg

DRUGS (3)
  1. ELIQUIS [Suspect]
     Indication: CARDIAC PACEMAKER INSERTION
     Dates: start: 20140113
  2. COQ10 [Concomitant]
  3. VITAMIN D [Concomitant]

REACTIONS (1)
  - Tooth disorder [Unknown]
